FAERS Safety Report 7832937-5 (Version None)
Quarter: 2011Q4

REPORT INFORMATION
  Report Type: 
  Country: None (occurrence: None)
  Receive Date: 20111019
  Receipt Date: 20111004
  Transmission Date: 20120403
  Serious: Yes (Other)
  Sender: FDA-Public Use
  Company Number: TPA2011A06038

PATIENT
  Age: 64 Year
  Sex: Male
  Weight: 83.9154 kg

DRUGS (24)
  1. GLIPIZIDE [Concomitant]
  2. LOVAZA [Concomitant]
  3. FOLIC ACID [Concomitant]
  4. GLUCOPHAGE [Concomitant]
  5. TOPROL-XL [Concomitant]
  6. PAXIL [Concomitant]
  7. MULTIVITAMIN [Concomitant]
  8. 1) ONGLYZA (SAXAGLIPTIN) [Concomitant]
  9. VICTOZA [Concomitant]
  10. METFORMIN HCL [Concomitant]
  11. BUSPAR [Concomitant]
  12. FLOMAX [Concomitant]
  13. BUSPAR [Concomitant]
  14. VIAGRA [Concomitant]
  15. ASCORBIC ACID [Concomitant]
  16. ACTOS [Suspect]
     Indication: TYPE 2 DIABETES MELLITUS
     Dosage: 30 MG, 1 IN 1 D, PER ORAL
     Dates: start: 20101128, end: 20110919
  17. DICYCLOMINE HCL(DICYCLOVERINE) [Concomitant]
  18. LIPITOR [Concomitant]
  19. CENTRUM (VITAMINS NOS, MINERALS NOS) [Concomitant]
  20. EXFORGE [Concomitant]
  21. BYETTA [Concomitant]
  22. PROSCAR [Concomitant]
  23. ASPIRIN [Concomitant]
  24. GLUCOTROL XL [Concomitant]

REACTIONS (2)
  - TRANSITIONAL CELL CARCINOMA [None]
  - HYDRONEPHROSIS [None]
